FAERS Safety Report 9086872 (Version 1)
Quarter: 2013Q1

REPORT INFORMATION
  Report Type: Spontaneous
  Country: PR (occurrence: PR)
  Receive Date: 20130201
  Receipt Date: 20130201
  Transmission Date: 20140127
  Serious: No
  Sender: FDA-Public Use
  Company Number: PR-ABBOTT-12P-131-0898116-00

PATIENT
  Age: 52 None
  Sex: Female
  Weight: 68.1 kg

DRUGS (5)
  1. HUMIRA [Suspect]
     Indication: RHEUMATOID ARTHRITIS
     Route: 058
     Dates: start: 2009, end: 201201
  2. HUMIRA [Suspect]
     Route: 058
     Dates: start: 201201, end: 201204
  3. HUMIRA [Suspect]
     Route: 058
     Dates: start: 201204, end: 201212
  4. CLARITIN [Concomitant]
     Indication: SINUSITIS
     Route: 048
  5. NORFLEX [Concomitant]
     Indication: PAIN
     Dosage: BID, PRN
     Route: 048

REACTIONS (6)
  - Malaise [Recovered/Resolved]
  - Nasopharyngitis [Recovered/Resolved]
  - Oropharyngeal pain [Recovered/Resolved]
  - Bronchitis [Recovering/Resolving]
  - Tendon injury [Recovering/Resolving]
  - Fall [Recovering/Resolving]
